FAERS Safety Report 8042702-4 (Version None)
Quarter: 2011Q4

REPORT INFORMATION
  Report Type: 
  Country: None (occurrence: None)
  Receive Date: 20111202
  Receipt Date: 20081031
  Transmission Date: 20120403
  Serious: Yes (Hospitalization, Other)
  Sender: FDA-Public Use
  Company Number: 2008-186240-NL

PATIENT
  Age: 29 Year
  Sex: Female
  Weight: 77.1 kg

DRUGS (2)
  1. NUVARING [Suspect]
     Indication: MENSTRUATION IRREGULAR
     Dosage: 1 DF;
     Dates: start: 20060101, end: 20060325
  2. NUVARING [Suspect]
     Indication: CONTRACEPTION
     Dosage: 1 DF;
     Dates: start: 20060101, end: 20060325

REACTIONS (4)
  - MIGRAINE [None]
  - PULMONARY EMBOLISM [None]
  - MUSCLE SPASMS [None]
  - METRORRHAGIA [None]
